FAERS Safety Report 4314315-9 (Version None)
Quarter: 2004Q1

REPORT INFORMATION
  Report Type: 
  Country: None (occurrence: None)
  Receive Date: 20040309
  Receipt Date: 20040309
  Transmission Date: 20041129
  Serious: No
  Sender: FDA-Public Use
  Company Number: None

PATIENT
  Age: 59 Year
  Sex: Male
  Weight: 103.4201 kg

DRUGS (1)
  1. PENTOXIFYLLINE [Suspect]
     Indication: INTERMITTENT CLAUDICATION
     Dosage: 400 MG BID ORAL
     Route: 048
     Dates: start: 20040101, end: 20040301

REACTIONS (2)
  - HYPOAESTHESIA [None]
  - PARAESTHESIA [None]
